FAERS Safety Report 19643284 (Version 1)
Quarter: 2021Q3

REPORT INFORMATION
  Report Type: Spontaneous
  Country: US (occurrence: US)
  Receive Date: 20210730
  Receipt Date: 20210730
  Transmission Date: 20211014
  Serious: No
  Sender: FDA-Public Use
  Company Number: US-ENDO PHARMACEUTICALS INC-2021-009893

PATIENT
  Age: 44 Year
  Sex: Female
  Weight: 54.42 kg

DRUGS (1)
  1. QWO [Suspect]
     Active Substance: COLLAGENASE CLOSTRIDIUM HISTOLYTICUM-AAES
     Indication: PEAU D^ORANGE
     Dosage: UNK UNKNOWN, UNKNOWN; 2 VIALS
     Route: 065
     Dates: start: 20210612

REACTIONS (4)
  - Injection site swelling [Unknown]
  - Injection site bruising [Unknown]
  - Skin discolouration [Not Recovered/Not Resolved]
  - Injection site pain [Recovering/Resolving]

NARRATIVE: CASE EVENT DATE: 20210612
